FAERS Safety Report 13383194 (Version 2)
Quarter: 2017Q2

REPORT INFORMATION
  Report Type: Spontaneous
  Country: US (occurrence: US)
  Receive Date: 20170329
  Receipt Date: 20170403
  Transmission Date: 20170830
  Serious: Yes (Other)
  Sender: FDA-Public Use
  Company Number: US-CLOVIS ONCOLOGY-CLO-2017-000058

PATIENT
  Age: 84 Year
  Sex: Female

DRUGS (1)
  1. RUBRACA [Suspect]
     Active Substance: RUCAPARIB CAMSYLATE
     Indication: OVARIAN CANCER
     Dosage: 600 MG, BID
     Route: 048
     Dates: start: 20170207, end: 20170306

REACTIONS (9)
  - Fatigue [Not Recovered/Not Resolved]
  - Constipation [Not Recovered/Not Resolved]
  - Decreased appetite [Not Recovered/Not Resolved]
  - Dysuria [Recovering/Resolving]
  - Renal function test abnormal [Unknown]
  - Malignant neoplasm progression [Unknown]
  - Anxiety [Unknown]
  - Tumour marker increased [Not Recovered/Not Resolved]
  - Early satiety [Unknown]

NARRATIVE: CASE EVENT DATE: 2017
